FAERS Safety Report 9887532 (Version 2)
Quarter: 2014Q1

REPORT INFORMATION
  Report Type: Spontaneous
  Country: FR (occurrence: FR)
  Receive Date: 20140211
  Receipt Date: 20140228
  Transmission Date: 20141002
  Serious: Yes (Other)
  Sender: FDA-Public Use
  Company Number: FR-ACCORD-021820

PATIENT
  Age: 44 Year
  Sex: Male

DRUGS (1)
  1. DOCETAXEL [Suspect]
     Indication: BRONCHIAL CARCINOMA
     Dosage: ONE ADMINISTRATION
     Route: 042
     Dates: start: 20131204, end: 20131231

REACTIONS (2)
  - Pleural effusion [Recovered/Resolved]
  - Pericarditis [Recovered/Resolved]
